FAERS Safety Report 4700962-9 (Version None)
Quarter: 2005Q2

REPORT INFORMATION
  Report Type: 
  Country: None (occurrence: None)
  Receive Date: 20050628
  Receipt Date: 20050617
  Transmission Date: 20051028
  Serious: Yes (Hospitalization)
  Sender: FDA-Public Use
  Company Number: PHBS2005JP08859

PATIENT

DRUGS (2)
  1. RITALIN [Suspect]
     Indication: CEREBRAL INFARCTION
     Route: 065
  2. SYMMETREL [Suspect]
     Indication: CEREBRAL INFARCTION
     Route: 065

REACTIONS (1)
  - AGGRESSION [None]
